FAERS Safety Report 7507197-5 (Version None)
Quarter: 2011Q2

REPORT INFORMATION
  Report Type: 
  Country: None (occurrence: None)
  Receive Date: 20110526
  Receipt Date: 20110420
  Transmission Date: 20111010
  Serious: No
  Sender: FDA-Public Use
  Company Number: US-BAYER-2011-035245

PATIENT
  Age: 84 Year
  Sex: Female
  Weight: 63.492 kg

DRUGS (3)
  1. AMLODIPINE [Concomitant]
  2. METOPROLOL TARTRATE [Concomitant]
  3. ALEVE (CAPLET) [Suspect]
     Indication: BACK PAIN
     Dosage: 2 DF, UNK
     Route: 048
     Dates: start: 20110420

REACTIONS (1)
  - BACK PAIN [None]
